FAERS Safety Report 20345311 (Version 1)
Quarter: 2022Q1

REPORT INFORMATION
  Report Type: Report from Study
  Country: US (occurrence: US)
  Receive Date: 20220118
  Receipt Date: 20220118
  Transmission Date: 20220423
  Serious: Yes (Life-Threatening, Other)
  Sender: FDA-Public Use
  Company Number: US-TAKEDA-2022TUS002657

PATIENT
  Sex: Female

DRUGS (1)
  1. VORTIOXETINE [Suspect]
     Active Substance: VORTIOXETINE
     Indication: Product used for unknown indication
     Dosage: 10 MILLIGRAM, QD
     Route: 048

REACTIONS (7)
  - Suicidal ideation [Unknown]
  - Withdrawal syndrome [Unknown]
  - Therapy interrupted [Unknown]
  - Fatigue [Unknown]
  - Disturbance in attention [Unknown]
  - Depression [Unknown]
  - Dizziness [Unknown]
